FAERS Safety Report 14959893 (Version 6)
Quarter: 2020Q2

REPORT INFORMATION
  Report Type: Spontaneous
  Country: US (occurrence: US)
  Receive Date: 20180531
  Receipt Date: 20200519
  Transmission Date: 20200713
  Serious: Yes (Death, Hospitalization)
  Sender: FDA-Public Use
  Company Number: US-ACTELION-A-US2018-173098

PATIENT
  Age: 61 Year
  Sex: Female
  Weight: 52.15 kg

DRUGS (5)
  1. OPSUMIT [Suspect]
     Active Substance: MACITENTAN
     Indication: PULMONARY ARTERIAL HYPERTENSION
     Dosage: 10 MG, QD
     Route: 048
  2. UPTRAVI [Suspect]
     Active Substance: SELEXIPAG
     Dosage: 800 MCG, BID
     Route: 048
  3. UPTRAVI [Suspect]
     Active Substance: SELEXIPAG
     Indication: PULMONARY ARTERIAL HYPERTENSION
     Dosage: UNK
     Route: 048
  4. SILDENAFIL CITRATE. [Concomitant]
     Active Substance: SILDENAFIL CITRATE
  5. ELIQUIS [Concomitant]
     Active Substance: APIXABAN

REACTIONS (18)
  - Death [Fatal]
  - Colon cancer [Unknown]
  - Feeding disorder [Unknown]
  - Product dose omission [Unknown]
  - Fatigue [Unknown]
  - Dysstasia [Unknown]
  - Gait inability [Unknown]
  - Dyspnoea [Unknown]
  - Anaemia [Recovering/Resolving]
  - Haemoglobin decreased [Recovering/Resolving]
  - Head injury [Unknown]
  - Condition aggravated [Unknown]
  - Malaise [Unknown]
  - Transfusion [Recovering/Resolving]
  - Vomiting [Unknown]
  - Chest pain [Unknown]
  - Haematocrit decreased [Recovering/Resolving]
  - Fall [Unknown]

NARRATIVE: CASE EVENT DATE: 201806
